FAERS Safety Report 17566885 (Version 1)
Quarter: 2020Q1

REPORT INFORMATION
  Report Type: Spontaneous
  Country: JP (occurrence: JP)
  Receive Date: 20200320
  Receipt Date: 20200320
  Transmission Date: 20200409
  Serious: Yes (Death, Other)
  Sender: FDA-Public Use
  Company Number: JP-SA-2020SA069203

PATIENT
  Age: 66 Year
  Sex: Male

DRUGS (1)
  1. CLOPIDOGREL TABLETS 75MG [SANIK] [Suspect]
     Active Substance: CLOPIDOGREL BISULFATE
     Indication: PRODUCT USED FOR UNKNOWN INDICATION
     Dosage: UNK
     Route: 048
     Dates: start: 201808, end: 201809

REACTIONS (3)
  - Infection [Unknown]
  - Multiple organ dysfunction syndrome [Fatal]
  - Drug reaction with eosinophilia and systemic symptoms [Unknown]
